FAERS Safety Report 10632459 (Version 3)
Quarter: 2015Q1

REPORT INFORMATION
  Report Type: Spontaneous
  Country: US (occurrence: US)
  Receive Date: 20141205
  Receipt Date: 20150123
  Transmission Date: 20150720
  Serious: Yes (Hospitalization)
  Sender: FDA-Public Use
  Company Number: US-BRISTOL-MYERS SQUIBB COMPANY-21499421

PATIENT
  Age: 54 Year
  Sex: Female

DRUGS (1)
  1. SPRYCEL [Suspect]
     Active Substance: DASATINIB
     Indication: CHRONIC MYELOID LEUKAEMIA
     Dosage: TABS  INTERRUPTED FOR ONE WEEK AND RESTARTED  09SEP14:80 MG PER DAY
     Route: 048
     Dates: start: 20140905

REACTIONS (15)
  - Fluid retention [Unknown]
  - Swelling [Unknown]
  - Drug dose omission [Unknown]
  - Chest discomfort [Unknown]
  - Dizziness [Unknown]
  - Fatigue [Recovering/Resolving]
  - Cough [Unknown]
  - Blepharospasm [Unknown]
  - Haemoglobin decreased [Recovering/Resolving]
  - Anaemia [Recovered/Resolved]
  - Food allergy [Unknown]
  - Paraesthesia [Unknown]
  - Hypotension [Unknown]
  - White blood cell count decreased [Recovering/Resolving]
  - Nasopharyngitis [Recovered/Resolved]

NARRATIVE: CASE EVENT DATE: 2014
